FAERS Safety Report 9463955 (Version 1)
Quarter: 2013Q3

REPORT INFORMATION
  Report Type: Spontaneous
  Country: US (occurrence: US)
  Receive Date: 20130819
  Receipt Date: 20130819
  Transmission Date: 20140515
  Serious: No
  Sender: FDA-Public Use
  Company Number: US-BRISTOL-MYERS SQUIBB COMPANY-16703233

PATIENT
  Age: 39 Year
  Sex: Male

DRUGS (5)
  1. ATAZANAVIR [Suspect]
     Indication: HIV INFECTION
  2. TRUVADA [Suspect]
     Indication: HIV INFECTION
     Dates: start: 200501, end: 201010
  3. RITONAVIR [Suspect]
     Indication: HIV INFECTION
  4. KLONOPIN [Concomitant]
  5. WELLBUTRIN [Concomitant]

REACTIONS (4)
  - Electrolyte imbalance [Recovering/Resolving]
  - Glycosuria [Recovering/Resolving]
  - Renal impairment [Recovering/Resolving]
  - Proteinuria [Recovering/Resolving]
